FAERS Safety Report 9671754 (Version 5)
Quarter: 2014Q2

REPORT INFORMATION
  Report Type: Report from Study
  Country: US (occurrence: US)
  Receive Date: 20131106
  Receipt Date: 20140418
  Transmission Date: 20141212
  Serious: Yes (Other)
  Sender: FDA-Public Use
  Company Number: US-SA-2013SA109622

PATIENT
  Age: 59 Year
  Sex: Female

DRUGS (2)
  1. AUBAGIO [Suspect]
     Indication: MULTIPLE SCLEROSIS
     Dosage: STARTED LAST THURSDAY
     Route: 048
     Dates: start: 20131017, end: 20131101
  2. SOLUMEDROL [Suspect]
     Indication: PRODUCT USED FOR UNKNOWN INDICATION
     Route: 042

REACTIONS (21)
  - Chest pain [Recovered/Resolved]
  - Cold sweat [Not Recovered/Not Resolved]
  - Mental status changes [Unknown]
  - Hyperhidrosis [Unknown]
  - Heart rate increased [Not Recovered/Not Resolved]
  - Panic attack [Not Recovered/Not Resolved]
  - Condition aggravated [Not Recovered/Not Resolved]
  - Anxiety [Not Recovered/Not Resolved]
  - Blood pressure increased [Not Recovered/Not Resolved]
  - Multiple sclerosis relapse [Unknown]
  - Paraesthesia [Not Recovered/Not Resolved]
  - Pain in extremity [Not Recovered/Not Resolved]
  - Malaise [Not Recovered/Not Resolved]
  - Blood glucose increased [Unknown]
  - Headache [Unknown]
  - Chest pain [Unknown]
  - Nausea [Unknown]
  - Asthenia [Unknown]
  - Balance disorder [Unknown]
  - Abdominal pain [Unknown]
  - Abdominal distension [Unknown]
